APPROVED DRUG PRODUCT: CORDRAN
Active Ingredient: FLURANDRENOLIDE
Strength: 0.004MG/SQ CM
Dosage Form/Route: TAPE;TOPICAL
Application: N016455 | Product #001
Applicant: ALMIRALL LLC
Approved: Approved Prior to Jan 1, 1982 | RLD: Yes | RS: Yes | Type: RX